FAERS Safety Report 15647962 (Version 4)
Quarter: 2019Q2

REPORT INFORMATION
  Report Type: Spontaneous
  Country: US (occurrence: US)
  Receive Date: 20181122
  Receipt Date: 20190529
  Transmission Date: 20190711
  Serious: Yes (Other)
  Sender: FDA-Public Use
  Company Number: US-PFIZER INC-2018480731

PATIENT
  Age: 65 Year
  Sex: Male

DRUGS (5)
  1. XELJANZ [Suspect]
     Active Substance: TOFACITINIB CITRATE
     Indication: RHEUMATOID ARTHRITIS
     Dosage: 5 MG, 2X/DAY
     Route: 048
     Dates: start: 20180615
  2. XELJANZ [Suspect]
     Active Substance: TOFACITINIB CITRATE
     Dosage: 5 MG, 2X/DAY
  3. NEXIUM [Concomitant]
     Active Substance: ESOMEPRAZOLE MAGNESIUM
     Indication: ABDOMINAL DISCOMFORT
     Dosage: 40 MG, UNK
  4. SULFASALAZINE. [Concomitant]
     Active Substance: SULFASALAZINE
     Indication: INFLAMMATION
     Dosage: 500 MG, UNK
  5. RELAFEN [Concomitant]
     Active Substance: NABUMETONE
     Indication: INFLAMMATION
     Dosage: 500 MG, UNK

REACTIONS (7)
  - Rhinorrhoea [Unknown]
  - Diarrhoea [Unknown]
  - Therapeutic product effect incomplete [Not Recovered/Not Resolved]
  - Bleeding time prolonged [Unknown]
  - Haemorrhage [Unknown]
  - Pruritus generalised [Unknown]
  - Skin laceration [Unknown]
